FAERS Safety Report 21407973 (Version 1)
Quarter: 2022Q4

REPORT INFORMATION
  Report Type: Spontaneous
  Country: DE (occurrence: DE)
  Receive Date: 20221004
  Receipt Date: 20221004
  Transmission Date: 20230113
  Serious: Yes (Hospitalization)
  Sender: FDA-Public Use
  Company Number: DE-ADRED-06432-02

PATIENT
  Age: 80 Year
  Sex: Male

DRUGS (11)
  1. CLOPIDOGREL [Suspect]
     Active Substance: CLOPIDOGREL BISULFATE
     Indication: Product used for unknown indication
     Dosage: 1 DOSAGE FORMS DAILY; 75 MG, 1-0-0-0, UNIT DOSE : 1 DF , FREQUENCY : OD
  2. CANDESARTAN [Concomitant]
     Active Substance: CANDESARTAN
     Indication: Product used for unknown indication
     Dosage: 1 DOSAGE FORMS DAILY; 8 MG, 1-0-0-0, UNIT DOSE : 1 DF , FREQUENCY : OD
  3. FOLIC ACID [Concomitant]
     Active Substance: FOLIC ACID
     Indication: Product used for unknown indication
     Dosage: 1 DOSAGE FORMS DAILY; 5 MG, 1-0-0-0, STRENGTH : 5 MG, UNIT DOSE : 1 DF , FREQUENCY : OD
  4. SIMVASTATIN [Concomitant]
     Active Substance: SIMVASTATIN
     Indication: Product used for unknown indication
     Dosage: 1 DOSAGE FORMS DAILY; 20 MG, 0-0-1-0, UNIT DOSE : 1 DF , FREQUENCY : OD
  5. TESTOSTERONE [Concomitant]
     Active Substance: TESTOSTERONE
     Indication: Product used for unknown indication
     Dosage: 1 DOSAGE FORMS DAILY; 16.2 MG, 1-0-0-0, TESTOGEL DOSING GEL 16.2MG/G, UNIT DOSE : 1 DF , FREQUENCY :
  6. OMEPRAZOLE MAGNESIUM [Concomitant]
     Active Substance: OMEPRAZOLE MAGNESIUM
     Indication: Product used for unknown indication
     Dosage: 1 DOSAGE FORMS DAILY; 10 MG, 1-0-0-0, UNIT DOSE : 1 DF , FREQUENCY : OD , STRENGTH : 10 MG
  7. HYDROMORPHONE [Concomitant]
     Active Substance: HYDROMORPHONE
     Indication: Product used for unknown indication
     Dosage: 2 DOSAGE FORMS DAILY; 10 MG, 1-0-1-0, UNIT DOSE : 1 DF , FREQUENCY :BD
  8. EUTHYROX [Concomitant]
     Active Substance: LEVOTHYROXINE SODIUM
     Indication: Product used for unknown indication
     Dosage: 1 DOSAGE FORMS DAILY; 88 MCG, 1-0-0-0, STRENGTH : 0.088MG, UNIT DOSE : 1 DF , FREQUENCY : OD
  9. METOPROLOL [Concomitant]
     Active Substance: METOPROLOL
     Indication: Product used for unknown indication
     Dosage: 1 DOSAGE FORMS DAILY; 95 MG, 1-0-0-0, UNIT DOSE : 1 DF , FREQUENCY : OD
  10. pravidel [Concomitant]
     Indication: Product used for unknown indication
     Dosage: 2 DOSAGE FORMS DAILY; 2.5 MG, 1-0-1-0, STRENGTH : 2.5 MG, UNIT DOSE : 1 DF , FREQUENCY : BD
  11. LYRICA [Concomitant]
     Active Substance: PREGABALIN
     Indication: Product used for unknown indication
     Dosage: 1 DOSAGE FORMS DAILY; 75 MG, 1-0-0-0, STRENGTH : 75 MG, UNIT DOSE : 1 DF , FREQUENCY : OD

REACTIONS (8)
  - Palpitations [Unknown]
  - Haemorrhage [Unknown]
  - Fatigue [Unknown]
  - Pallor [Unknown]
  - Blood loss anaemia [Unknown]
  - Dyspnoea [Unknown]
  - Dizziness [Unknown]
  - Iron deficiency anaemia [Unknown]
